FAERS Safety Report 4631220-9 (Version None)
Quarter: 2005Q2

REPORT INFORMATION
  Report Type: 
  Country: None (occurrence: None)
  Receive Date: 20050407
  Receipt Date: 20050407
  Transmission Date: 20051028
  Serious: Yes (Other)
  Sender: FDA-Public Use
  Company Number: None

PATIENT
  Age: 47 Year
  Sex: Male
  Weight: 90.4 kg

DRUGS (9)
  1. ROCEPHIN [Suspect]
     Indication: LYME DISEASE
     Dosage: 2000 MG IV Q 12 H
     Route: 042
     Dates: start: 20050228, end: 20050406
  2. METHADONE HCL [Concomitant]
  3. PREVACID [Concomitant]
  4. TIZANIDINE [Concomitant]
  5. BEXTRA [Concomitant]
  6. URSO 250 [Concomitant]
  7. TINDAMAX [Concomitant]
  8. COUMADIN [Concomitant]
  9. ACIDOPHILUS [Concomitant]

REACTIONS (2)
  - ABDOMINAL PAIN UPPER [None]
  - CHOLELITHIASIS [None]
